FAERS Safety Report 20786954 (Version 1)
Quarter: 2022Q2

REPORT INFORMATION
  Report Type: Spontaneous
  Country: US (occurrence: US)
  Receive Date: 20220505
  Receipt Date: 20220505
  Transmission Date: 20220721
  Serious: Yes (Other)
  Sender: FDA-Public Use
  Company Number: US-NOVARTISPH-NVSC2022US100930

PATIENT
  Age: 66 Year
  Sex: Female

DRUGS (2)
  1. LINEZOLID [Suspect]
     Active Substance: LINEZOLID
     Indication: Pulmonary nocardiosis
     Dosage: 600 MG, QD
     Route: 065
  2. CEFTRIAXONE [Concomitant]
     Active Substance: CEFTRIAXONE
     Indication: Pulmonary nocardiosis
     Dosage: 2 G, QD
     Route: 065

REACTIONS (2)
  - Leukopenia [Unknown]
  - Product use in unapproved indication [Unknown]
